FAERS Safety Report 6980382-7 (Version None)
Quarter: 2010Q3

REPORT INFORMATION
  Report Type: 
  Country: None (occurrence: None)
  Receive Date: 20100914
  Receipt Date: 20100119
  Transmission Date: 20110219
  Serious: No
  Sender: FDA-Public Use
  Company Number: US-ABBOTT-10P-163-0620666-00

PATIENT
  Age: 22 Year
  Sex: Female
  Weight: 59.02 kg

DRUGS (5)
  1. DEPAKOTE [Suspect]
     Indication: AUTISM
     Dosage: UNKNOWN
     Dates: start: 20090101, end: 20090101
  2. DEPAKOTE [Suspect]
     Indication: CONVULSION
     Dosage: 500MG IN AM AND 1000MG IN PM
     Dates: start: 20100101
  3. UNKNOWN MEDICATION [Concomitant]
     Indication: GASTROOESOPHAGEAL REFLUX DISEASE
  4. LAMICTAL [Concomitant]
     Indication: AUTISM
     Dosage: UNKNOWN
     Dates: start: 20090101, end: 20100101
  5. LAMICTAL [Concomitant]
     Indication: CONVULSION

REACTIONS (3)
  - DIARRHOEA [None]
  - GASTROENTERITIS VIRAL [None]
  - MEDICATION RESIDUE [None]
